FAERS Safety Report 5163102-0 (Version None)
Quarter: 2006Q4

REPORT INFORMATION
  Report Type: 
  Country: None (occurrence: None)
  Receive Date: 20061201
  Receipt Date: 20061120
  Transmission Date: 20070319
  Serious: Yes (Disabling)
  Sender: FDA-Public Use
  Company Number: IT-MERCK-0611ITA00026

PATIENT
  Age: 70 Year
  Sex: Female

DRUGS (3)
  1. FOSAMAX [Suspect]
     Route: 048
     Dates: start: 20040901, end: 20050401
  2. FOSAMAX [Suspect]
     Route: 048
     Dates: start: 20040101, end: 20040801
  3. RALOXIFENE HYDROCHLORIDE [Suspect]
     Route: 048
     Dates: start: 20050601, end: 20060401

REACTIONS (3)
  - OPTIC ATROPHY [None]
  - RETINAL DETACHMENT [None]
  - RETINAL DISORDER [None]
